FAERS Safety Report 10097947 (Version 2)
Quarter: 2014Q2

REPORT INFORMATION
  Report Type: Spontaneous
  Country: JP (occurrence: JP)
  Receive Date: 20140423
  Receipt Date: 20140502
  Transmission Date: 20141212
  Serious: Yes (Other)
  Sender: FDA-Public Use
  Company Number: JP-PFIZER INC-2014107195

PATIENT
  Age: 72 Year
  Sex: Male

DRUGS (4)
  1. XALATAN [Suspect]
     Dosage: 1 DROP FOR EACH EYE, DAILY
     Route: 047
  2. TIMOPTOL [Suspect]
     Dosage: 1 DF, UNK
     Route: 047
  3. AIPHAGAN [Suspect]
     Route: 047
  4. TRUSOPT [Concomitant]
     Dosage: UNK
     Route: 047

REACTIONS (4)
  - Bronchostenosis [Recovered/Resolved]
  - Blood pressure fluctuation [Unknown]
  - Tachycardia [Unknown]
  - Bronchial irritation [Recovered/Resolved]
